FAERS Safety Report 17686457 (Version 1)
Quarter: 2020Q2

REPORT INFORMATION
  Report Type: Spontaneous
  Country: US (occurrence: US)
  Receive Date: 20200420
  Receipt Date: 20200420
  Transmission Date: 20200714
  Serious: Yes (Life-Threatening)
  Sender: FDA-Public Use
  Company Number: US-LUNDBECK-DKLU3015535

PATIENT
  Age: 2 Year
  Sex: Female

DRUGS (2)
  1. SABRIL [Suspect]
     Active Substance: VIGABATRIN
     Indication: INFANTILE SPASMS
  2. SABRIL [Suspect]
     Active Substance: VIGABATRIN
     Indication: CONGENITAL CENTRAL NERVOUS SYSTEM ANOMALY
     Route: 048

REACTIONS (1)
  - Malaise [Unknown]
